FAERS Safety Report 24429392 (Version 1)
Quarter: 2024Q4

REPORT INFORMATION
  Report Type: Report from Study
  Country: US (occurrence: US)
  Receive Date: 20241011
  Receipt Date: 20241011
  Transmission Date: 20250115
  Serious: Yes (Other)
  Sender: TAIHO ONCOLOGY INC
  Company Number: US-OTSUKA-2024_016115

PATIENT
  Age: 80 Year
  Sex: Female
  Weight: 71 kg

DRUGS (5)
  1. INQOVI [Suspect]
     Active Substance: CEDAZURIDINE\DECITABINE
     Indication: Acute myeloid leukaemia
     Dosage: 1 DF (35 MG DECITABINE AND 100 MG CEDAZURIDINE), QD (ON DAYS 1-5 OF EACH 28 DAYS CYCLE)?DAILY DOSE:
     Route: 048
  2. INQOVI [Suspect]
     Active Substance: CEDAZURIDINE\DECITABINE
     Dosage: 1 DF (35 MG DECITABINE AND 100 MG CEDAZURIDINE), QD (ON DAYS 1-5 OF EACH 28 DAYS CYCLE)?DAILY DOSE:
     Route: 048
     Dates: start: 20240702
  3. INQOVI [Suspect]
     Active Substance: CEDAZURIDINE\DECITABINE
     Dosage: CYCLE UNKNOWN
     Route: 048
     Dates: start: 20240514
  4. TIBSOVO [Suspect]
     Active Substance: IVOSIDENIB
     Indication: Acute myeloid leukaemia
     Dosage: 500 MG, QD?DAILY DOSE: 500 MILLIGRAM(S)
     Route: 065
  5. TIBSOVO [Suspect]
     Active Substance: IVOSIDENIB
     Dosage: 2 DF (250MG), QD?DAILY DOSE: 4 DOSAGE FORM
     Route: 065
     Dates: start: 20240702

REACTIONS (16)
  - Differentiation syndrome [Recovered/Resolved]
  - Neutropenia [Unknown]
  - Transfusion [Unknown]
  - Haemoglobin decreased [Unknown]
  - Off label use [Unknown]
  - Immune-mediated dermatitis [Unknown]
  - Swelling face [Unknown]
  - Fatigue [Unknown]
  - Erythema [Unknown]
  - Platelet count decreased [Unknown]
  - Illness [Unknown]
  - Liver function test increased [Unknown]
  - Blood glucose increased [Unknown]
  - Oedema peripheral [Unknown]
  - Constipation [Unknown]
  - Dry mouth [Unknown]

NARRATIVE: CASE EVENT DATE: 20240101
